FAERS Safety Report 6808524-4 (Version None)
Quarter: 2010Q2

REPORT INFORMATION
  Report Type: 
  Country: None (occurrence: None)
  Receive Date: 20100629
  Receipt Date: 20090610
  Transmission Date: 20101027
  Serious: No
  Sender: FDA-Public Use
  Company Number: US-PFIZER INC-2009225427

PATIENT
  Age: 52 Year
  Sex: Female

DRUGS (7)
  1. XANAX [Suspect]
     Indication: ANXIETY
     Dosage: UNK
     Route: 048
     Dates: start: 20090401
  2. LEXAPRO [Suspect]
     Indication: DEPRESSION
     Dosage: 10 MG, 1X/DAY
     Route: 048
     Dates: start: 20090401
  3. OMEPRAZOLE [Concomitant]
     Dosage: UNK
  4. CLARITIN [Concomitant]
     Dosage: UNK
  5. ADVIL LIQUI-GELS [Concomitant]
     Dosage: UNK
  6. DIPHENHYDRAMINE [Concomitant]
     Dosage: UNK
  7. VITAMINS NOS [Concomitant]

REACTIONS (2)
  - DISTURBANCE IN ATTENTION [None]
  - FATIGUE [None]
